FAERS Safety Report 6638772-8 (Version None)
Quarter: 2010Q1

REPORT INFORMATION
  Report Type: 
  Country: None (occurrence: None)
  Receive Date: 20100317
  Receipt Date: 20100305
  Transmission Date: 20100710
  Serious: Yes (Other)
  Sender: FDA-Public Use
  Company Number: NO-PFIZER INC-2010029154

PATIENT
  Age: 56 Year
  Sex: Male

DRUGS (3)
  1. LYRICA [Suspect]
     Indication: TRIGEMINAL NEURALGIA
     Dosage: 450 MG, 1X/DAY
     Dates: start: 20091214, end: 20100125
  2. LYRICA [Suspect]
     Indication: GENERALISED ANXIETY DISORDER
  3. EFFEXOR [Concomitant]
     Dosage: 175 MG, 1X/DAY

REACTIONS (1)
  - HYPOMANIA [None]
